FAERS Safety Report 5659221-2 (Version None)
Quarter: 2008Q1

REPORT INFORMATION
  Report Type: 
  Country: None (occurrence: None)
  Receive Date: 20080311
  Receipt Date: 20070525
  Transmission Date: 20080703
  Serious: No
  Sender: FDA-Public Use
  Company Number: US-BAYER-200711732BCC

PATIENT
  Sex: Male
  Weight: 80 kg

DRUGS (3)
  1. ALEVE [Suspect]
     Indication: PAIN IN EXTREMITY
     Dosage: TOTAL DAILY DOSE: 220 MG  UNIT DOSE: 220 MG
     Route: 048
  2. TYLENOL (CAPLET) [Concomitant]
  3. ANTIBIOTIC [Concomitant]

REACTIONS (2)
  - CONSTIPATION [None]
  - SOMNOLENCE [None]
